FAERS Safety Report 6126623-X (Version None)
Quarter: 2009Q1

REPORT INFORMATION
  Report Type: 
  Country: None (occurrence: None)
  Receive Date: 20090320
  Receipt Date: 20090317
  Transmission Date: 20090719
  Serious: Yes (Death, Hospitalization)
  Sender: FDA-Public Use
  Company Number: GR-ABBOTT-09P-066-0562945-00

PATIENT
  Age: 85 Year
  Sex: Female
  Weight: 56 kg

DRUGS (8)
  1. ZEMPLAR [Suspect]
     Indication: HYPERPARATHYROIDISM SECONDARY
     Route: 042
     Dates: start: 20080208, end: 20090306
  2. RENAGEL [Concomitant]
     Indication: DRUG USE FOR UNKNOWN INDICATION
     Dosage: 2 CAPSULES IN AM; 3 CAPSULES AT NOON; 2 CAPSULES IN THE PM
     Route: 048
     Dates: start: 20060329
  3. MIMPARA [Concomitant]
     Indication: DRUG USE FOR UNKNOWN INDICATION
     Route: 048
     Dates: start: 20060628
  4. ISCOVER [Concomitant]
     Indication: DRUG USE FOR UNKNOWN INDICATION
     Route: 048
     Dates: start: 20061101
  5. MIACALCIN [Concomitant]
     Indication: DRUG USE FOR UNKNOWN INDICATION
     Route: 045
     Dates: start: 20081030
  6. LEPUR [Concomitant]
     Indication: DRUG USE FOR UNKNOWN INDICATION
     Route: 048
     Dates: start: 20080220
  7. FILICINE [Concomitant]
     Indication: DRUG USE FOR UNKNOWN INDICATION
     Route: 048
     Dates: start: 20080903
  8. AMLOPEN [Concomitant]
     Indication: DRUG USE FOR UNKNOWN INDICATION
     Route: 048
     Dates: start: 20071128

REACTIONS (7)
  - ACUTE RESPIRATORY FAILURE [None]
  - COMMUNICATION DISORDER [None]
  - CYANOSIS [None]
  - DYSPNOEA [None]
  - HYPERCALCAEMIA [None]
  - HYPERCAPNIA [None]
  - RESPIRATORY TRACT INFECTION [None]
